FAERS Safety Report 8005414-9 (Version None)
Quarter: 2011Q4

REPORT INFORMATION
  Report Type: 
  Country: None (occurrence: None)
  Receive Date: 20111223
  Receipt Date: 20111220
  Transmission Date: 20120403
  Serious: Yes (Hospitalization, Other)
  Sender: FDA-Public Use
  Company Number: 2011SP004164

PATIENT
  Age: 71 Year
  Sex: Female

DRUGS (2)
  1. LUNESTA [Suspect]
     Indication: INSOMNIA
     Route: 048
     Dates: start: 20090101
  2. HYDROCODONE BITARTRATE [Suspect]
     Indication: PAIN
     Dates: start: 20111206

REACTIONS (7)
  - OVARIAN CYST [None]
  - HALLUCINATION [None]
  - CHRONIC LYMPHOCYTIC LEUKAEMIA [None]
  - PNEUMONIA [None]
  - DYSPNOEA [None]
  - DEHYDRATION [None]
  - FATIGUE [None]
